FAERS Safety Report 5517129-7 (Version None)
Quarter: 2007Q4

REPORT INFORMATION
  Report Type: 
  Country: None (occurrence: None)
  Receive Date: 20071114
  Receipt Date: 20071106
  Transmission Date: 20080405
  Serious: Yes (Congenital Anomaly)
  Sender: FDA-Public Use
  Company Number: B0488606A

PATIENT
  Age: 51 Year
  Sex: Female
  Weight: 106 kg

DRUGS (2)
  1. LAMOTRIGINE [Suspect]
     Indication: BIPOLAR DISORDER
     Dosage: 200MG PER DAY
     Route: 048
  2. VENLAFAXINE HCL [Concomitant]
     Indication: MAJOR DEPRESSION
     Dosage: 300MG PER DAY

REACTIONS (4)
  - EPISTAXIS [None]
  - PERIORBITAL HAEMATOMA [None]
  - PERIORBITAL OEDEMA [None]
  - VARICOSE VEIN [None]
